FAERS Safety Report 23908325 (Version 2)
Quarter: 2024Q3

REPORT INFORMATION
  Report Type: Spontaneous
  Country: JP (occurrence: JP)
  Receive Date: 20240528
  Receipt Date: 20240701
  Transmission Date: 20241016
  Serious: Yes (Hospitalization, Other)
  Sender: ELI LILLY AND CO
  Company Number: JP-ELI_LILLY_AND_COMPANY-JP202404000333

PATIENT
  Age: 73 Year
  Sex: Female

DRUGS (4)
  1. RETEVMO [Suspect]
     Active Substance: SELPERCATINIB
     Indication: Lung neoplasm malignant
     Dosage: 320 MG, UNKNOWN
     Route: 048
     Dates: start: 20240319
  2. RETEVMO [Suspect]
     Active Substance: SELPERCATINIB
     Dosage: 80 MG, UNKNOWN
     Route: 048
     Dates: start: 20240408, end: 20240418
  3. RETEVMO [Suspect]
     Active Substance: SELPERCATINIB
     Dosage: 40 MG, DAILY
     Route: 048
  4. RETEVMO [Suspect]
     Active Substance: SELPERCATINIB
     Dosage: 80 MG, DAILY
     Route: 048

REACTIONS (6)
  - Pericardial effusion [Recovered/Resolved]
  - Pericardial effusion [Unknown]
  - Malignant neoplasm progression [Unknown]
  - Electrocardiogram QT prolonged [Recovered/Resolved]
  - Hypersensitivity [Recovered/Resolved]
  - Dizziness [Recovered/Resolved]

NARRATIVE: CASE EVENT DATE: 20240301
